FAERS Safety Report 8438461 (Version 3)
Quarter: 2012Q4

REPORT INFORMATION
  Report Type: 
  Country: US (occurrence: US)
  Receive Date: 20120302
  Receipt Date: 20120917
  Transmission Date: 20130627
  Serious: Yes (Other)
  Sender: FDA-Public Use
  Company Number: US-PFIZER INC-2012053804

PATIENT
  Age: 60 Year
  Sex: Female

DRUGS (18)
  1. LIPITOR [Suspect]
     Dosage: 40 mg, 1x/day at bedtimes
     Route: 048
  2. NITROSTAT [Concomitant]
     Dosage: every 5 minute, as needed
     Route: 060
  3. HYDROCODONE W/ACETAMINOPHEN [Concomitant]
     Indication: PAIN
     Dosage: 5 mg-325 mg (1, every 4 hours)
     Route: 048
  4. BENZONATATE [Concomitant]
     Dosage: 200 mg, 3x/day
     Route: 048
  5. AZITHROMYCIN [Concomitant]
     Dosage: 500 mg, 1x/day
     Route: 048
  6. SINGULAIR [Concomitant]
     Dosage: 10 mg, 1x/day
     Route: 048
  7. ALBUTEROL [Concomitant]
     Dosage: UNK
  8. AMITRIPTYLINE [Concomitant]
     Dosage: 75 mg, 2x/day
     Route: 048
  9. CALCIUM WITH VITAMIN D [Concomitant]
     Dosage: 200mg-200 intl units, 2x/day
     Route: 048
  10. BENADRYL [Concomitant]
     Dosage: 50 mg, UNK
     Route: 048
  11. NEXIUM [Concomitant]
     Dosage: 40 mg, 1x/day
     Route: 048
  12. FISH OIL [Concomitant]
     Dosage: UNK
     Route: 048
  13. FLONASE [Concomitant]
     Dosage: UNK
     Route: 045
  14. KYTRIL [Concomitant]
     Dosage: UNK
  15. VITAMIN E [Concomitant]
     Dosage: UNK
  16. IMITREX [Concomitant]
     Dosage: 100 mg, 1x/day
     Route: 048
  17. CARVEDILOL [Concomitant]
     Dosage: UNK
     Route: 048
  18. ACETAMINOPHEN [Concomitant]
     Dosage: UNK

REACTIONS (5)
  - Arthropathy [Unknown]
  - Arthritis [Unknown]
  - Pain [Unknown]
  - Crying [Unknown]
  - Drug ineffective [Unknown]
